FAERS Safety Report 18066945 (Version 3)
Quarter: 2020Q3

REPORT INFORMATION
  Report Type: Report from Study
  Country: None (occurrence: DE)
  Receive Date: 20200724
  Receipt Date: 20200801
  Transmission Date: 20201103
  Serious: Yes (Death)
  Sender: FDA-Public Use
  Company Number: DE-ABBVIE-20K-062-3495801-00

PATIENT
  Age: 51 Year
  Sex: Male
  Weight: 141 kg

DRUGS (6)
  1. SEROQUEL [Concomitant]
     Active Substance: QUETIAPINE FUMARATE
     Indication: DRUG DEPENDENCE
     Dates: end: 20200505
  2. MAVIRET [Suspect]
     Active Substance: GLECAPREVIR\PIBRENTASVIR
     Indication: CHRONIC HEPATITIS C
     Dosage: 100 MG GLECAPREVIR/40 MG PIBRENTASVIR TABLETS
     Route: 048
     Dates: start: 20191119, end: 20200114
  3. MIRTAZAPIN [Concomitant]
     Active Substance: MIRTAZAPINE
     Indication: DEPRESSION
     Route: 048
     Dates: start: 20171102, end: 20200505
  4. SULMYCIN CELESTAN [Concomitant]
     Indication: PRODUCT USED FOR UNKNOWN INDICATION
     Dates: end: 20200505
  5. DOLOPHINE [Concomitant]
     Active Substance: METHADONE HYDROCHLORIDE
     Indication: DRUG DEPENDENCE
     Route: 048
     Dates: start: 20190309, end: 20200505
  6. MIRTAZAPIN [Concomitant]
     Active Substance: MIRTAZAPINE
     Indication: DEPENDENCE

REACTIONS (7)
  - Hypertension [Unknown]
  - Glycosylated haemoglobin increased [Unknown]
  - Oedema [Unknown]
  - Thrombosis [Unknown]
  - Myocardial infarction [Fatal]
  - Blood glucose increased [Unknown]
  - Haematuria [Unknown]

NARRATIVE: CASE EVENT DATE: 20200530
